FAERS Safety Report 8549161-3 (Version None)
Quarter: 2012Q3

REPORT INFORMATION
  Report Type: 
  Country: None (occurrence: None)
  Receive Date: 20120730
  Receipt Date: 20120725
  Transmission Date: 20120928
  Serious: Yes (Other)
  Sender: FDA-Public Use
  Company Number: US-PFIZER INC-2012180201

PATIENT
  Sex: Female
  Weight: 90.249 kg

DRUGS (5)
  1. LAMOTRIGINE [Suspect]
     Dosage: UNK
  2. XANAX [Suspect]
     Dosage: HALF TABLET OF UNKNOWN DOSE, 2X/DAY
     Route: 048
  3. ABILIFY [Suspect]
     Dosage: UNK
  4. PRISTIQ [Suspect]
     Indication: BIPOLAR DISORDER
     Dosage: UNK, DAILY
     Route: 048
     Dates: start: 20120413, end: 20120613
  5. PRISTIQ [Suspect]
     Indication: DEPRESSION

REACTIONS (7)
  - DEPRESSED MOOD [None]
  - IRRITABILITY [None]
  - MEDICATION RESIDUE [None]
  - DRUG INEFFECTIVE [None]
  - WEIGHT DECREASED [None]
  - HAEMORRHOIDAL HAEMORRHAGE [None]
  - PANIC ATTACK [None]
